FAERS Safety Report 5021188-8 (Version None)
Quarter: 2006Q2

REPORT INFORMATION
  Report Type: 
  Country: None (occurrence: None)
  Receive Date: 20060608
  Receipt Date: 20060531
  Transmission Date: 20061013
  Serious: Yes (Other)
  Sender: FDA-Public Use
  Company Number: 2006AP02534

PATIENT
  Age: 22 Year
  Sex: Male

DRUGS (5)
  1. PROPOFOL [Suspect]
     Indication: INDUCTION OF ANAESTHESIA
     Route: 042
  2. SUXAMETHONIUM CHLORIDE [Concomitant]
     Indication: INDUCTION OF ANAESTHESIA
  3. OXYGEN [Concomitant]
     Indication: MAINTENANCE OF ANAESTHESIA
     Route: 055
  4. SEVOFLURANE [Concomitant]
     Indication: MAINTENANCE OF ANAESTHESIA
     Route: 055
  5. FENTANYL CITRATE [Concomitant]
     Indication: MAINTENANCE OF ANAESTHESIA

REACTIONS (2)
  - HYPERTHERMIA MALIGNANT [None]
  - METABOLIC ACIDOSIS [None]
